FAERS Safety Report 18903114 (Version 6)
Quarter: 2022Q2

REPORT INFORMATION
  Report Type: Report from Study
  Country: CA (occurrence: CA)
  Receive Date: 20210216
  Receipt Date: 20220510
  Transmission Date: 20220720
  Serious: Yes (Other)
  Sender: FDA-Public Use
  Company Number: CA-JNJFOC-20201241140

PATIENT
  Age: 38 Year
  Sex: Female
  Weight: 96 kg

DRUGS (4)
  1. REMICADE [Suspect]
     Active Substance: INFLIXIMAB
     Indication: Takayasu^s arteritis
     Route: 042
     Dates: start: 20161201
  2. REMICADE [Suspect]
     Active Substance: INFLIXIMAB
     Route: 042
  3. WELLBUTRIN [Concomitant]
     Active Substance: BUPROPION HYDROCHLORIDE
     Indication: Product used for unknown indication
     Route: 065
  4. LISDEXAMFETAMINE [Concomitant]
     Active Substance: LISDEXAMFETAMINE
     Indication: Product used for unknown indication
     Route: 065

REACTIONS (7)
  - Deafness unilateral [Not Recovered/Not Resolved]
  - Vascular neoplasm [Not Recovered/Not Resolved]
  - Ear infection [Not Recovered/Not Resolved]
  - Vertigo [Not Recovered/Not Resolved]
  - Vomiting [Not Recovered/Not Resolved]
  - Pain in jaw [Unknown]
  - Nausea [Not Recovered/Not Resolved]

NARRATIVE: CASE EVENT DATE: 20200901
